FAERS Safety Report 9328569 (Version 1)
Quarter: 2013Q2

REPORT INFORMATION
  Report Type: Spontaneous
  Country: US (occurrence: None)
  Receive Date: 20130531
  Receipt Date: 20130531
  Transmission Date: 20140414
  Serious: Yes (Life-Threatening, Hospitalization)
  Sender: FDA-Public Use
  Company Number: 20130267

PATIENT
  Age: 18 Year
  Sex: Male

DRUGS (2)
  1. LEVETIRACETAM [Suspect]
     Indication: CONVULSION
  2. PHENYTOIN [Suspect]
     Indication: CONVULSION

REACTIONS (11)
  - Drug reaction with eosinophilia and systemic symptoms [None]
  - Prothrombin time prolonged [None]
  - International normalised ratio increased [None]
  - Blood pressure decreased [None]
  - Drug hypersensitivity [None]
  - Erythema multiforme [None]
  - Toxic epidermal necrolysis [None]
  - Vasculitis [None]
  - Viral infection [None]
  - Epstein-Barr virus infection [None]
  - Congenital cytomegalovirus infection [None]
